FAERS Safety Report 15275063 (Version 4)
Quarter: 2018Q4

REPORT INFORMATION
  Report Type: Spontaneous
  Country: US (occurrence: US)
  Receive Date: 20180814
  Receipt Date: 20181106
  Transmission Date: 20190204
  Serious: No
  Sender: FDA-Public Use
  Company Number: US-PFIZER INC-2018325304

PATIENT
  Age: 62 Year
  Sex: Female

DRUGS (2)
  1. IBRANCE [Suspect]
     Active Substance: PALBOCICLIB
     Indication: BREAST CANCER FEMALE
     Dosage: 125 MG, CYCLIC [DAYS 1-21]
     Route: 048
     Dates: start: 20170328
  2. FEMARA [Concomitant]
     Active Substance: LETROZOLE
     Dosage: UNK

REACTIONS (10)
  - Oral herpes [Unknown]
  - Aphthous ulcer [Unknown]
  - Nausea [Unknown]
  - Disturbance in attention [Unknown]
  - Memory impairment [Unknown]
  - Insomnia [Unknown]
  - Cystitis interstitial [Unknown]
  - Onychoclasis [Unknown]
  - Pelvic pain [Unknown]
  - Fatigue [Unknown]

NARRATIVE: CASE EVENT DATE: 201805
